FAERS Safety Report 4797298-7 (Version None)
Quarter: 2005Q4

REPORT INFORMATION
  Report Type: 
  Country: None (occurrence: None)
  Receive Date: 20051013
  Receipt Date: 20051010
  Transmission Date: 20060501
  Serious: Yes (Hospitalization, Congenital Anomaly)
  Sender: FDA-Public Use
  Company Number: NL-GLAXOSMITHKLINE-B0396971A

PATIENT
  Age: 0 Year
  Sex: Male
  Weight: 2 kg

DRUGS (1)
  1. SEROXAT [Suspect]
     Indication: DRUG USE FOR UNKNOWN INDICATION
     Dosage: 20MG UNKNOWN

REACTIONS (10)
  - CONGENITAL ANOMALY [None]
  - CONVULSION [None]
  - DRUG EXPOSURE DURING PREGNANCY [None]
  - DRUG WITHDRAWAL SYNDROME [None]
  - EATING DISORDER [None]
  - FEEDING DISORDER NEONATAL [None]
  - ILL-DEFINED DISORDER [None]
  - MUSCLE TWITCHING [None]
  - RETROGNATHIA [None]
  - SMALL FOR DATES BABY [None]
